FAERS Safety Report 9576606 (Version 1)
Quarter: 2013Q4

REPORT INFORMATION
  Report Type: Spontaneous
  Country: US (occurrence: US)
  Receive Date: 20131001
  Receipt Date: 20131001
  Transmission Date: 20140711
  Serious: No
  Sender: FDA-Public Use
  Company Number: US-AMGEN-USASP2013003959

PATIENT
  Age: 63 Year
  Sex: Male
  Weight: 70.3 kg

DRUGS (1)
  1. ENBREL [Suspect]
     Indication: PSORIASIS
     Dosage: 50 MG, 2 TIMES/WK
     Route: 058
     Dates: start: 20101118

REACTIONS (7)
  - Sinus disorder [Unknown]
  - Sleep disorder [Unknown]
  - Erectile dysfunction [Unknown]
  - Fatigue [Unknown]
  - Rhinorrhoea [Unknown]
  - Dyspnoea [Unknown]
  - Productive cough [Unknown]
